FAERS Safety Report 12870134 (Version 1)
Quarter: 2016Q4

REPORT INFORMATION
  Report Type: Spontaneous
  Country: CN (occurrence: CN)
  Receive Date: 20161021
  Receipt Date: 20161021
  Transmission Date: 20170207
  Serious: Yes (Hospitalization, Other)
  Sender: FDA-Public Use
  Company Number: CN-PFIZER INC-2016479577

PATIENT
  Age: 79 Year
  Sex: Female
  Weight: 56 kg

DRUGS (12)
  1. HEPARIN SODIUM. [Suspect]
     Active Substance: HEPARIN SODIUM
     Indication: THROMBOSIS PROPHYLAXIS
     Dosage: 4250 IU, 2X/DAY
     Route: 058
     Dates: start: 20160726, end: 20160802
  2. NIMODIPINE. [Concomitant]
     Active Substance: NIMODIPINE
     Dosage: 20 MG, 1X/DAY
     Dates: start: 20160701
  3. NIFEDIPINE. [Concomitant]
     Active Substance: NIFEDIPINE
     Dosage: 1 DF (100 ML I.V. GTT), 2X/DAY
     Route: 041
     Dates: start: 20160701
  4. LIPITOR [Suspect]
     Active Substance: ATORVASTATIN CALCIUM
     Indication: HYPERLIPIDAEMIA
     Dosage: 40 MG, 1X/DAY
     Route: 048
     Dates: start: 20160701, end: 20160711
  5. IRBESARTAN. [Concomitant]
     Active Substance: IRBESARTAN
     Indication: HYPERTENSION
     Dosage: 150 MG, 1X/DAY
  6. LIPITOR [Suspect]
     Active Substance: ATORVASTATIN CALCIUM
     Dosage: 20 MG, 1X/DAY
     Route: 048
     Dates: start: 20160712, end: 20160731
  7. EN BI PU [Suspect]
     Active Substance: DIBUTYL PHTHALATE
     Dosage: UNK
  8. HEPARIN CALCIUM [Concomitant]
     Active Substance: HEPARIN CALCIUM
     Dosage: 5000 IU, 1X/DAY
     Route: 058
     Dates: start: 20160724
  9. CLOPIDOGREL SULFATE [Suspect]
     Active Substance: CLOPIDOGREL BISULFATE
     Indication: PLATELET AGGREGATION INHIBITION
     Dosage: 50 MG, 1X/DAY
     Route: 048
     Dates: start: 20160712, end: 20160726
  10. EN BI PU [Suspect]
     Active Substance: DIBUTYL PHTHALATE
     Indication: CEREBRAL INFARCTION
     Dosage: 0.2 G, 3X/DAY
     Route: 048
     Dates: start: 20160709, end: 20160731
  11. EDARAVONE NEEDLE [Concomitant]
     Dosage: UNK
  12. ASPIRIN ENTERIC COATED [Concomitant]
     Active Substance: ASPIRIN
     Indication: PLATELET AGGREGATION INHIBITION
     Dosage: 200 MG, 1X/DAY
     Dates: start: 20160701, end: 20160712

REACTIONS (2)
  - Pulmonary embolism [Unknown]
  - Hepatic enzyme increased [Recovering/Resolving]

NARRATIVE: CASE EVENT DATE: 20160725
